FAERS Safety Report 25274597 (Version 1)
Quarter: 2025Q2

REPORT INFORMATION
  Report Type: Spontaneous
  Country: US (occurrence: None)
  Receive Date: 20250506
  Receipt Date: 20250506
  Transmission Date: 20250717
  Serious: No
  Sender: FDA-CTU
  Company Number: None

PATIENT
  Sex: Female

DRUGS (1)
  1. RINVOQ [Suspect]
     Active Substance: UPADACITINIB
     Indication: Product used for unknown indication
     Dosage: FREQUENCY : DAILY;?
     Route: 048

REACTIONS (6)
  - Fatigue [None]
  - Dizziness [None]
  - Palpitations [None]
  - Feeling abnormal [None]
  - Feeling abnormal [None]
  - Alopecia [None]
